FAERS Safety Report 16120060 (Version 1)
Quarter: 2019Q1

REPORT INFORMATION
  Report Type: Report from Study
  Country: JP (occurrence: JP)
  Receive Date: 20190326
  Receipt Date: 20190326
  Transmission Date: 20190418
  Serious: Yes (Hospitalization, Other)
  Sender: FDA-Public Use
  Company Number: JP-GILEAD-2019-0398622

PATIENT
  Age: 54 Year
  Sex: Male

DRUGS (31)
  1. TRAZENTA [Concomitant]
     Active Substance: LINAGLIPTIN
     Route: 048
     Dates: start: 20170225
  2. VALIXA [Concomitant]
     Active Substance: VALGANCICLOVIR
     Route: 048
     Dates: start: 20170225, end: 20170329
  3. ETOPOSIDE. [Concomitant]
     Active Substance: ETOPOSIDE
     Route: 041
     Dates: start: 20170225, end: 20170619
  4. ENDOXAN [CYCLOPHOSPHAMIDE] [Concomitant]
     Active Substance: CYCLOPHOSPHAMIDE
     Route: 065
     Dates: start: 20170423, end: 20170620
  5. GENINAX [Concomitant]
     Active Substance: GARENOXACIN MESYLATE
     Indication: PROPHYLAXIS
     Route: 048
     Dates: start: 20170501, end: 20170731
  6. CYLOCIDE [Concomitant]
     Active Substance: CYTARABINE
     Route: 065
     Dates: start: 20170225, end: 20170614
  7. HYDROCORTONE [HYDROCORTISONE SODIUM PHOSPHATE] [Concomitant]
     Indication: PROPHYLAXIS
     Route: 042
     Dates: start: 20170417, end: 20170614
  8. EMTRICITABINE/TENOFOVIR ALAFENAMIDE [Suspect]
     Active Substance: EMTRICITABINE\TENOFOVIR
     Indication: HIV INFECTION
     Dosage: 1 DF, QD
     Route: 048
     Dates: start: 20170225
  9. ZITHROMAC [Concomitant]
     Active Substance: AZITHROMYCIN DIHYDRATE
     Indication: PROPHYLAXIS
     Route: 065
     Dates: start: 20170225
  10. FLUCONAZOLE. [Concomitant]
     Active Substance: FLUCONAZOLE
     Route: 065
     Dates: start: 20170225, end: 20171017
  11. ONCOVIN [Concomitant]
     Active Substance: VINCRISTINE SULFATE
     Route: 042
     Dates: start: 20170225, end: 20170619
  12. MOSAPRIDE CITRATE DIHYDRATE [Concomitant]
     Active Substance: MOSAPRIDE CITRATE DIHYDRATE
     Route: 048
     Dates: start: 20170225, end: 20170228
  13. RITUXAN [Concomitant]
     Active Substance: RITUXIMAB
     Route: 041
     Dates: start: 20170225, end: 20170615
  14. LEUCOVORIN [CALCIUM FOLINATE] [Concomitant]
     Active Substance: LEUCOVORIN
     Indication: PROPHYLAXIS
     Route: 065
     Dates: start: 20170308, end: 20170330
  15. ISENTRESS [Suspect]
     Active Substance: RALTEGRAVIR POTASSIUM
     Indication: HIV INFECTION
     Route: 048
     Dates: start: 20170225
  16. DAIPHEN [Concomitant]
     Active Substance: SULFAMETHOXAZOLE\TRIMETHOPRIM
     Indication: PROPHYLAXIS
     Route: 048
     Dates: start: 20170225, end: 20170802
  17. SUREPOST [Concomitant]
     Active Substance: REPAGLINIDE
     Route: 048
     Dates: start: 20170225
  18. MAXIPIME [Concomitant]
     Active Substance: CEFEPIME HYDROCHLORIDE
     Route: 042
     Dates: start: 20170225, end: 20170703
  19. PREDNISOLONE. [Concomitant]
     Active Substance: PREDNISOLONE
     Route: 065
     Dates: start: 20170225, end: 20170620
  20. HUMULIN R [Concomitant]
     Active Substance: INSULIN HUMAN
     Route: 065
     Dates: start: 20170225, end: 20170703
  21. NEUTROGIN [Concomitant]
     Active Substance: LENOGRASTIM
     Route: 042
     Dates: start: 20170225, end: 20170703
  22. DECADRON [Concomitant]
     Active Substance: DEXAMETHASONE
     Route: 065
     Dates: start: 20170307, end: 20170328
  23. POLARAMINE [Concomitant]
     Active Substance: DEXCHLORPHENIRAMINE MALEATE
     Indication: PROPHYLAXIS
     Route: 065
     Dates: start: 20170313, end: 20170615
  24. SAMTIREL [Concomitant]
     Active Substance: ATOVAQUONE
     Indication: PROPHYLAXIS
     Route: 048
     Dates: start: 20170727, end: 20170802
  25. NEXIUM [Concomitant]
     Active Substance: ESOMEPRAZOLE MAGNESIUM
     Indication: PROPHYLAXIS
     Route: 048
     Dates: start: 20170225, end: 20170802
  26. METHOTREXATE. [Concomitant]
     Active Substance: METHOTREXATE
     Route: 065
     Dates: start: 20170225, end: 20170614
  27. ALOXI [Concomitant]
     Active Substance: PALONOSETRON HYDROCHLORIDE
     Indication: PROPHYLAXIS
     Route: 042
     Dates: start: 20170307, end: 20170328
  28. DIAMOX SEQUELS [Concomitant]
     Active Substance: ACETAZOLAMIDE
     Indication: PROPHYLAXIS
     Route: 065
     Dates: start: 20170307, end: 20170330
  29. GRANISETRON [Concomitant]
     Active Substance: GRANISETRON
     Indication: PROPHYLAXIS
     Route: 065
     Dates: start: 20170419, end: 20170620
  30. DOXORUBICIN HYDROCHLORIDE. [Concomitant]
     Active Substance: DOXORUBICIN HYDROCHLORIDE
     Route: 065
     Dates: start: 20170225, end: 20170619
  31. MEYLON [Concomitant]
     Active Substance: SODIUM BICARBONATE
     Indication: PROPHYLAXIS
     Route: 042
     Dates: start: 20170307, end: 20170331

REACTIONS (14)
  - Cytomegalovirus chorioretinitis [Unknown]
  - Insomnia [Recovering/Resolving]
  - Stomatitis [Recovering/Resolving]
  - Dermatophytosis of nail [Not Recovered/Not Resolved]
  - Diarrhoea [Recovering/Resolving]
  - Eczema [Not Recovered/Not Resolved]
  - Proctalgia [Recovering/Resolving]
  - Nasopharyngitis [Recovering/Resolving]
  - Agranulocytosis [Unknown]
  - Haemorrhoids [Recovering/Resolving]
  - Arthralgia [Not Recovered/Not Resolved]
  - Bronchitis [Recovering/Resolving]
  - Folliculitis [Unknown]
  - Hypertriglyceridaemia [Unknown]

NARRATIVE: CASE EVENT DATE: 20170226
